FAERS Safety Report 25421575 (Version 3)
Quarter: 2025Q3

REPORT INFORMATION
  Report Type: Spontaneous
  Country: US (occurrence: US)
  Receive Date: 20250611
  Receipt Date: 20250725
  Transmission Date: 20251020
  Serious: No
  Sender: ROCHE
  Company Number: US-ROCHE-10000302177

PATIENT
  Age: 51 Year
  Sex: Male
  Weight: 117.93 kg

DRUGS (7)
  1. XOLAIR [Suspect]
     Active Substance: OMALIZUMAB
     Indication: Urticaria
     Route: 058
     Dates: start: 2025
  2. XOLAIR [Suspect]
     Active Substance: OMALIZUMAB
     Indication: Idiopathic urticaria
     Route: 058
     Dates: start: 2025, end: 2025
  3. XOLAIR [Suspect]
     Active Substance: OMALIZUMAB
     Dosage: DOSE: 300MG/2ML
     Route: 058
     Dates: start: 202501
  4. ZYRTEC [Concomitant]
     Active Substance: CETIRIZINE HYDROCHLORIDE
     Indication: Urticaria
     Dosage: 2 OF 10MG TABLETS IN THE MORNING
     Route: 048
     Dates: start: 202409
  5. XYZAL [Concomitant]
     Active Substance: LEVOCETIRIZINE DIHYDROCHLORIDE
     Indication: Urticaria
     Dosage: 2 OF 5MG TABLETS AT NIGHT
     Route: 048
     Dates: start: 202409
  6. CYCLOSPORINE [Concomitant]
     Active Substance: CYCLOSPORINE
     Indication: Urticaria
     Dosage: IN THE MORNING AND AT NIGHT, 12 HOURS APART
     Route: 048
     Dates: start: 202409
  7. HUMALOG [Concomitant]
     Active Substance: INSULIN LISPRO
     Indication: Type 1 diabetes mellitus

REACTIONS (7)
  - Underdose [Unknown]
  - Device leakage [Unknown]
  - Wrong technique in product usage process [Unknown]
  - Pruritus [Not Recovered/Not Resolved]
  - Device malfunction [Unknown]
  - Accidental exposure to product [Unknown]
  - Urticaria [Unknown]

NARRATIVE: CASE EVENT DATE: 20250501
